FAERS Safety Report 7455963 (Version 2)
Quarter: 2013Q2

REPORT INFORMATION
  Report Type: Report from Study
  Country: FR (occurrence: FR)
  Receive Date: 20100707
  Receipt Date: 20130614
  Transmission Date: 20140414
  Serious: Yes (Hospitalization, Other)
  Sender: FDA-Public Use
  Company Number: PHHY2008FR25530

PATIENT
  Sex: Male

DRUGS (7)
  1. STI571 [Suspect]
     Indication: CHRONIC MYELOID LEUKAEMIA
     Dosage: 400 MG, DAILY
  2. SPIRIVA [Concomitant]
     Dosage: 0.5 MG DAILY
  3. KARDEGIC [Concomitant]
     Dosage: 75 MG, QD
  4. PLAVIX [Concomitant]
     Dosage: UNK UKN, UNK
  5. NOCTAMID [Concomitant]
     Dosage: 3 UKN, BID
  6. TAHOR [Concomitant]
     Dosage: 20 MG, DAILY
  7. TENORMINE [Concomitant]
     Dosage: 50 UKN, DAILY

REACTIONS (8)
  - Ischaemic cardiomyopathy [Unknown]
  - Ejection fraction decreased [Unknown]
  - Bundle branch block left [Unknown]
  - Arterial restenosis [Recovered/Resolved with Sequelae]
  - Dyspnoea [Recovered/Resolved with Sequelae]
  - Peripheral vascular disorder [Unknown]
  - Pain in extremity [Unknown]
  - Cough [Unknown]
